FAERS Safety Report 6590013-6 (Version None)
Quarter: 2010Q1

REPORT INFORMATION
  Report Type: 
  Country: None (occurrence: None)
  Receive Date: 20100212
  Receipt Date: 20100127
  Transmission Date: 20100710
  Serious: Yes (Other)
  Sender: FDA-Public Use
  Company Number: 238734K09USA

PATIENT
  Age: 50 Year
  Sex: Female
  Weight: 54 kg

DRUGS (6)
  1. REBIF [Suspect]
     Indication: MULTIPLE SCLEROSIS
     Dosage: 44 MCG, 3 IN 1 WEEKS,
     Dates: start: 20090513, end: 20091001
  2. UNSPECIFIED PREMEDICATION (ALL OTHER THERAPEUTIC PRODUCTS) [Concomitant]
  3. TOPAMAX [Concomitant]
  4. TRILEPTAL [Concomitant]
  5. PRILOSEC [Concomitant]
  6. LYRICA [Concomitant]

REACTIONS (4)
  - DIARRHOEA HAEMORRHAGIC [None]
  - DIVERTICULITIS [None]
  - HAEMORRHOIDS [None]
  - TRANSIENT ISCHAEMIC ATTACK [None]
